FAERS Safety Report 5085039-8 (Version None)
Quarter: 2006Q3

REPORT INFORMATION
  Report Type: 
  Country: None (occurrence: None)
  Receive Date: 20060815
  Receipt Date: 20060728
  Transmission Date: 20061208
  Serious: Yes (Hospitalization, Other)
  Sender: FDA-Public Use
  Company Number: US200607005327

PATIENT
  Age: 87 Year
  Sex: Female

DRUGS (2)
  1. FORTEO [Suspect]
     Dates: start: 20060616
  2. FORTEO [Concomitant]

REACTIONS (5)
  - CHEST PAIN [None]
  - DIARRHOEA [None]
  - GASTRIC DISORDER [None]
  - PANCREATITIS [None]
  - VOMITING [None]
